FAERS Safety Report 11241015 (Version 1)
Quarter: 2015Q3

REPORT INFORMATION
  Report Type: Spontaneous
  Country: US (occurrence: US)
  Receive Date: 20150706
  Receipt Date: 20150706
  Transmission Date: 20151125
  Serious: No
  Sender: FDA-Public Use
  Company Number: US-BAYER-2015-362153

PATIENT
  Sex: Female

DRUGS (2)
  1. FINACEA [Suspect]
     Active Substance: AZELAIC ACID
     Indication: ROSACEA
     Dosage: UNK
  2. FINACEA [Suspect]
     Active Substance: AZELAIC ACID
     Indication: RASH PUSTULAR

REACTIONS (4)
  - Erythema [None]
  - Dry skin [None]
  - Skin exfoliation [None]
  - Burning sensation [None]
